FAERS Safety Report 26037336 (Version 1)
Quarter: 2025Q4

REPORT INFORMATION
  Report Type: Spontaneous
  Country: CN (occurrence: CN)
  Receive Date: 20251112
  Receipt Date: 20251112
  Transmission Date: 20260117
  Serious: Yes (Hospitalization)
  Sender: MERCK SHARP & DOHME LLC
  Company Number: CN-009507513-2346340

PATIENT
  Age: 44 Year
  Sex: Female

DRUGS (1)
  1. PEMBROLIZUMAB [Suspect]
     Active Substance: PEMBROLIZUMAB
     Indication: Triple negative breast cancer
     Dosage: TOTALLY 12 CYCLES
     Dates: start: 202308, end: 202405

REACTIONS (4)
  - Immune-mediated gastritis [Recovered/Resolved]
  - Immune-mediated hepatic disorder [Unknown]
  - Chronic gastritis [Recovered/Resolved]
  - Immune-mediated pancreatitis [Unknown]

NARRATIVE: CASE EVENT DATE: 20240201
